FAERS Safety Report 15803488 (Version 1)
Quarter: 2019Q1

REPORT INFORMATION
  Report Type: Report from Study
  Country: JP (occurrence: JP)
  Receive Date: 20190109
  Receipt Date: 20190109
  Transmission Date: 20190417
  Serious: Yes (Other)
  Sender: FDA-Public Use
  Company Number: JP-ASTRAZENECA-2016SE97342

PATIENT
  Age: 65 Year
  Sex: Female
  Weight: 64 kg

DRUGS (10)
  1. GASMOTIN [Concomitant]
     Active Substance: MOSAPRIDE CITRATE
  2. PARIET [Concomitant]
     Active Substance: RABEPRAZOLE SODIUM
  3. CYTOTEC [Concomitant]
     Active Substance: MISOPROSTOL
  4. NEUROTROPIN [Concomitant]
     Active Substance: NEUROTROPIN
  5. BENFOTIAMINE [Concomitant]
     Active Substance: BENFOTIAMINE
  6. AZULFIDINE EN-TABS [Concomitant]
     Active Substance: SULFASALAZINE
  7. HIRUDOID [Concomitant]
     Active Substance: GLYCOSAMINOGLYCANS
  8. TAGRISSO [Suspect]
     Active Substance: OSIMERTINIB
     Indication: NON-SMALL CELL LUNG CANCER
     Route: 048
     Dates: start: 20160608
  9. PROGRAF [Suspect]
     Active Substance: TACROLIMUS\TACROLIMUS ANHYDROUS
     Indication: RHEUMATOID ARTHRITIS
     Dosage: NUMBER OF SEPARATE DOSAGES UNKNOWN
     Route: 048
     Dates: start: 20140730
  10. ETODOLAC. [Concomitant]
     Active Substance: ETODOLAC

REACTIONS (3)
  - Platelet count decreased [Not Recovered/Not Resolved]
  - Electrocardiogram QT prolonged [Recovered/Resolved]
  - Deep vein thrombosis [Recovered/Resolved]

NARRATIVE: CASE EVENT DATE: 20160728
